FAERS Safety Report 7041379-4 (Version None)
Quarter: 2010Q4

REPORT INFORMATION
  Report Type: 
  Country: None (occurrence: None)
  Receive Date: 20101013
  Receipt Date: 20101008
  Transmission Date: 20110411
  Serious: Yes (Death)
  Sender: FDA-Public Use
  Company Number: US-AMGEN-US338827

PATIENT
  Sex: Female

DRUGS (9)
  1. NPLATE [Suspect]
     Indication: IDIOPATHIC THROMBOCYTOPENIC PURPURA
     Route: 058
     Dates: start: 20081009, end: 20081030
  2. DURAGESIC-100 [Concomitant]
     Route: 062
  3. ROXICODONE [Concomitant]
  4. SOMA [Concomitant]
  5. VALTREX [Concomitant]
  6. NORVIR [Concomitant]
     Route: 048
  7. XANAX [Concomitant]
  8. ABACAVIR SULFATE AND LAMIVUDINE [Concomitant]
     Route: 048
  9. ATAZANAVIR [Concomitant]
     Route: 048

REACTIONS (2)
  - MUSCULOSKELETAL PAIN [None]
  - OVERDOSE [None]
